FAERS Safety Report 12463419 (Version 1)
Quarter: 2016Q2

REPORT INFORMATION
  Report Type: Spontaneous
  Country: US (occurrence: None)
  Receive Date: 20160613
  Receipt Date: 20160613
  Transmission Date: 20160815
  Serious: No
  Sender: FDA-Public Use
  Company Number: None

PATIENT
  Age: 53 Year
  Sex: Male
  Weight: 80.74 kg

DRUGS (10)
  1. PRILOSEC [Concomitant]
     Active Substance: OMEPRAZOLE MAGNESIUM
  2. CELEXA [Concomitant]
     Active Substance: CITALOPRAM HYDROBROMIDE
  3. AVODART [Concomitant]
     Active Substance: DUTASTERIDE
  4. SIMVISTATIN [Concomitant]
     Active Substance: SIMVASTATIN
  5. MULTIVITAMIN [Concomitant]
     Active Substance: VITAMINS
  6. ANASTROZOLE. [Suspect]
     Active Substance: ANASTROZOLE
     Indication: BLOOD TESTOSTERONE DECREASED
     Route: 048
     Dates: start: 20160206, end: 20160308
  7. FINASTERIDE. [Concomitant]
     Active Substance: FINASTERIDE
  8. NIACIN NO FLUSH [Concomitant]
  9. HELIOCARE [Concomitant]
  10. NIACINAMIDE [Concomitant]
     Active Substance: NIACINAMIDE

REACTIONS (2)
  - Skin discolouration [None]
  - Swelling face [None]

NARRATIVE: CASE EVENT DATE: 20160309
